FAERS Safety Report 7050098-X (Version None)
Quarter: 2010Q4

REPORT INFORMATION
  Report Type: 
  Country: None (occurrence: None)
  Receive Date: 20101018
  Receipt Date: 20101013
  Transmission Date: 20110411
  Serious: Yes (Death)
  Sender: FDA-Public Use
  Company Number: US-CELGENEUS-087-21880-10101245

PATIENT
  Age: 76 Year
  Sex: Female

DRUGS (2)
  1. REVLIMID [Suspect]
     Indication: MULTIPLE MYELOMA
     Route: 048
     Dates: start: 20100930, end: 20101001
  2. REVLIMID [Suspect]
     Route: 048
     Dates: start: 20101001, end: 20101001

REACTIONS (1)
  - PNEUMONIA [None]
